FAERS Safety Report 21298990 (Version 1)
Quarter: 2022Q3

REPORT INFORMATION
  Report Type: Spontaneous
  Country: US (occurrence: None)
  Receive Date: 20220905
  Receipt Date: 20220905
  Transmission Date: 20221027
  Serious: No
  Sender: FDA-Public Use
  Company Number: None

PATIENT
  Age: 49 Year
  Sex: Female
  Weight: 90 kg

DRUGS (2)
  1. LEVAQUIN [Suspect]
     Active Substance: LEVOFLOXACIN
     Indication: Urinary tract infection
     Dosage: OTHER QUANTITY : 1 TABLET(S);?FREQUENCY : DAILY;?
     Route: 048
     Dates: start: 20220401, end: 20220410
  2. LEVAQUIN [Suspect]
     Active Substance: LEVOFLOXACIN
     Indication: Klebsiella infection

REACTIONS (3)
  - Plantar fasciitis [None]
  - Movement disorder [None]
  - Arthropathy [None]

NARRATIVE: CASE EVENT DATE: 20220401
